FAERS Safety Report 23450962 (Version 2)
Quarter: 2024Q1

REPORT INFORMATION
  Report Type: Report from Study
  Country: US (occurrence: US)
  Receive Date: 20240129
  Receipt Date: 20240215
  Transmission Date: 20240410
  Serious: Yes (Death, Other)
  Sender: FDA-Public Use
  Company Number: US-ACADIA PHARMACEUTICALS INC.-ACA-2024-PIM-000064

PATIENT
  Age: 83 Year
  Sex: Male

DRUGS (21)
  1. NUPLAZID [Suspect]
     Active Substance: PIMAVANSERIN TARTRATE
     Indication: Parkinson^s disease
     Dosage: 34 MILLIGRAM, QD
     Route: 048
     Dates: start: 20230815
  2. NUPLAZID [Suspect]
     Active Substance: PIMAVANSERIN TARTRATE
     Indication: Dyskinesia
  3. NORTHERA [Concomitant]
     Active Substance: DROXIDOPA
  4. MELATONIN [Concomitant]
     Active Substance: MELATONIN
  5. VITAMIN D3 [Concomitant]
     Active Substance: CHOLECALCIFEROL
  6. MECLIZINE [Concomitant]
     Active Substance: MECLIZINE HYDROCHLORIDE
  7. INBRIJA [Concomitant]
     Active Substance: LEVODOPA
  8. ATROPINE SULFATE [Concomitant]
     Active Substance: ATROPINE SULFATE
  9. ALLEGRA ALLERGY [Concomitant]
     Active Substance: FEXOFENADINE HYDROCHLORIDE
  10. FLUAD NOS [Concomitant]
     Active Substance: INFLUENZA VIRUS VACCINE
  11. SINEMET [Concomitant]
     Active Substance: CARBIDOPA\LEVODOPA
  12. NAMENDA [Concomitant]
     Active Substance: MEMANTINE HYDROCHLORIDE
  13. CENTRUM ADULT [Concomitant]
  14. SENNA [Concomitant]
     Active Substance: SENNA LEAF\SENNOSIDES\SENNOSIDES A AND B
  15. NUBEQA [Concomitant]
     Active Substance: DAROLUTAMIDE
  16. MYRBETRIQ [Concomitant]
     Active Substance: MIRABEGRON
  17. SERTRALINE [Concomitant]
     Active Substance: SERTRALINE HYDROCHLORIDE
  18. RIVASTIGMINE [Concomitant]
     Active Substance: RIVASTIGMINE
  19. RYTARY [Concomitant]
     Active Substance: CARBIDOPA\LEVODOPA
  20. PEPCID [Concomitant]
     Active Substance: FAMOTIDINE
  21. VITAMIN D-400 [Concomitant]

REACTIONS (2)
  - Death [Fatal]
  - Delusion [Unknown]

NARRATIVE: CASE EVENT DATE: 20240101
